FAERS Safety Report 24583957 (Version 10)
Quarter: 2024Q4

REPORT INFORMATION
  Report Type: Spontaneous
  Country: US (occurrence: US)
  Receive Date: 20241106
  Receipt Date: 20241225
  Transmission Date: 20250114
  Serious: Yes (Other)
  Sender: ROCHE
  Company Number: US-ROCHE-10000120272

PATIENT
  Age: 39 Year
  Sex: Female

DRUGS (2)
  1. XOLAIR [Suspect]
     Active Substance: OMALIZUMAB
     Indication: Idiopathic urticaria
     Route: 065
  2. XOLAIR [Suspect]
     Active Substance: OMALIZUMAB
     Dosage: STRENGTH:150MG/ML
     Route: 058
     Dates: start: 202310

REACTIONS (9)
  - Needle issue [Unknown]
  - Injection site reaction [Unknown]
  - Needle issue [Unknown]
  - Injection site discharge [Unknown]
  - Device issue [Unknown]
  - Off label use [Unknown]
  - Syringe issue [Unknown]
  - Pain [Unknown]
  - Accidental exposure to product [Unknown]

NARRATIVE: CASE EVENT DATE: 20241028
